FAERS Safety Report 10905043 (Version 1)
Quarter: 2015Q1

REPORT INFORMATION
  Report Type: Spontaneous
  Country: US (occurrence: None)
  Receive Date: 20150304
  Receipt Date: 20150304
  Transmission Date: 20150721
  Serious: Yes (Death, Hospitalization, Congenital Anomaly)
  Sender: FDA-Public Use
  Company Number: None

PATIENT
  Sex: Female
  Weight: 2.04 kg

DRUGS (1)
  1. ZOFRAN [Suspect]
     Active Substance: ONDANSETRON HYDROCHLORIDE
     Indication: HYPEREMESIS GRAVIDARUM
     Dates: start: 20060401, end: 20061018

REACTIONS (11)
  - Congenital diaphragmatic hernia [None]
  - Peritoneal dialysis [None]
  - Maternal drugs affecting foetus [None]
  - Respiratory failure [None]
  - Pleural effusion [None]
  - Renal failure [None]
  - Pulmonary hypoplasia [None]
  - Cardiac arrest [None]
  - Caesarean section [None]
  - Disseminated intravascular coagulation [None]
  - Gastrointestinal perforation [None]

NARRATIVE: CASE EVENT DATE: 20060401
